FAERS Safety Report 7360396-8 (Version None)
Quarter: 2011Q1

REPORT INFORMATION
  Report Type: 
  Country: None (occurrence: None)
  Receive Date: 20110318
  Receipt Date: 20100921
  Transmission Date: 20110831
  Serious: Yes (Other)
  Sender: FDA-Public Use
  Company Number: US-BAYER-201029253NA

PATIENT
  Sex: Female
  Weight: 57 kg

DRUGS (4)
  1. YASMIN [Suspect]
     Indication: CONTRACEPTION
     Route: 048
     Dates: start: 20051101, end: 20090101
  2. UNCODEABLE ^UNCLASSIFIABLE^ [Concomitant]
     Dosage: 5 MG, UNK
     Route: 048
  3. SINGULAIR [Concomitant]
     Dosage: 10 MG, QD
     Route: 048
  4. FEXOFENADINE [Concomitant]
     Route: 048

REACTIONS (4)
  - CHOLELITHIASIS [None]
  - ABDOMINAL PAIN [None]
  - PAIN [None]
  - POST CHOLECYSTECTOMY SYNDROME [None]
